FAERS Safety Report 8141005 (Version 4)
Quarter: 2013Q3

REPORT INFORMATION
  Report Type: Spontaneous
  Country: US (occurrence: US)
  Receive Date: 20110918
  Receipt Date: 20130710
  Transmission Date: 20140515
  Serious: Yes (Hospitalization, Other)
  Sender: FDA-Public Use
  Company Number: US-ASTRAZENECA-2011SE54404

PATIENT
  Age: 80 Year
  Sex: Female
  Weight: 71.7 kg

DRUGS (27)
  1. CRESTOR [Suspect]
     Indication: HYPERCHOLESTEROLAEMIA
     Route: 048
     Dates: start: 20110308, end: 20110427
  2. CRESTOR [Suspect]
     Indication: HYPERCHOLESTEROLAEMIA
     Route: 048
     Dates: start: 20110315, end: 20110420
  3. LIPITOR [Suspect]
     Route: 048
     Dates: end: 201103
  4. LIPITOR [Suspect]
     Route: 048
     Dates: end: 201103
  5. LIPITOR [Suspect]
     Route: 048
     Dates: end: 20110315
  6. FOLIC ACID [Concomitant]
  7. ASPIRIN [Concomitant]
     Route: 048
  8. ASPIRIN [Concomitant]
     Route: 048
  9. DIOVAN [Concomitant]
     Route: 048
  10. VITAMIN D [Concomitant]
     Dosage: 1000 UNIT CAP, TAKE 2 EVERY DAY
     Route: 048
  11. AMBIEN [Concomitant]
     Route: 048
  12. COQ-10 [Concomitant]
  13. DOCUSATE SODIUM [Concomitant]
     Dosage: 200 MG AT BEDTIME AS NEEDED
     Route: 048
  14. DOCUSATE SODIUM [Concomitant]
     Dosage: 250 MG AT BEDTIME AS NEEDED
     Route: 048
  15. IRON ER [Concomitant]
     Dosage: 55MG (18 MG IRON) TAB EVERY DAY
  16. IRON ER [Concomitant]
     Dosage: TWO TIMES EVERY DAY
  17. PREDNISONE [Concomitant]
  18. VITAMIN B 12 [Concomitant]
     Dosage: 1000 MCG/ML, INJECT 0.1 ML (100MCG) EVERY MONTH
     Route: 030
  19. MEGESTROL [Concomitant]
     Route: 048
  20. MUPIROCIN [Concomitant]
     Dosage: TWO TIME EVERY DAY FOR 10 DAYS A SMALL AMOUNT ON AFFECTED AREA
     Route: 061
  21. AMOXICILLIN [Concomitant]
     Dosage: 2000 MG PRIOR TO DENTAL PROCEDURE
  22. IPRATROPIUM-ALBUTEROL [Concomitant]
     Dosage: 18 MCG-103 MCG ACTUATION AEROSOL INHALER AS NEEDED
  23. MULTIVITAMINS [Concomitant]
  24. LIVER MEDICATION [Concomitant]
  25. LEVOTHYROXINE [Concomitant]
  26. LEVOTHYROXINE [Concomitant]
  27. ZOLPIDEM [Concomitant]
     Route: 048

REACTIONS (21)
  - Renal failure acute [Not Recovered/Not Resolved]
  - Fall [Unknown]
  - Mobility decreased [Unknown]
  - Coronary artery disease [Unknown]
  - Breast cancer [Unknown]
  - Cough [Unknown]
  - Pyrexia [Unknown]
  - Blood thyroid stimulating hormone increased [Unknown]
  - Rhabdomyolysis [Recovering/Resolving]
  - Asthenia [Not Recovered/Not Resolved]
  - Anaemia [Unknown]
  - Hypothyroidism [Unknown]
  - Weight decreased [Unknown]
  - Body height decreased [Unknown]
  - Activities of daily living impaired [Unknown]
  - Polymyalgia rheumatica [Unknown]
  - Asthenia [Unknown]
  - Myalgia [Recovering/Resolving]
  - Fatigue [Recovered/Resolved]
  - Arthralgia [Unknown]
  - Muscular weakness [Recovering/Resolving]
